FAERS Safety Report 10930933 (Version 1)
Quarter: 2015Q1

REPORT INFORMATION
  Report Type: Spontaneous
  Country: US (occurrence: None)
  Receive Date: 20150318
  Receipt Date: 20150318
  Transmission Date: 20150721
  Serious: Yes (Death)
  Sender: FDA-Public Use
  Company Number: None

PATIENT
  Age: 50 Year
  Sex: Male

DRUGS (5)
  1. MULTIVIT TAB [Concomitant]
  2. CAPECITABINE. [Suspect]
     Active Substance: CAPECITABINE
     Indication: MALIGNANT ANORECTAL NEOPLASM
     Dosage: 2000MG BID X 14 PO
     Route: 048
     Dates: start: 20140812, end: 20150309
  3. CHLORPROMAZINE [Concomitant]
     Active Substance: CHLORPROMAZINE
  4. OXYCODONE [Concomitant]
     Active Substance: OXYCODONE
     Indication: MALIGNANT ANORECTAL NEOPLASM
     Dosage: BID X 14
     Route: 048
     Dates: start: 20140812, end: 20150309
  5. SIMCOR [Concomitant]
     Active Substance: NIACIN\SIMVASTATIN

REACTIONS (1)
  - Death [None]

NARRATIVE: CASE EVENT DATE: 20150309
